FAERS Safety Report 4701783-3 (Version None)
Quarter: 2005Q2

REPORT INFORMATION
  Report Type: 
  Country: None (occurrence: None)
  Receive Date: 20050627
  Receipt Date: 20050616
  Transmission Date: 20051028
  Serious: Yes (Hospitalization, Other)
  Sender: FDA-Public Use
  Company Number: 2005090108

PATIENT
  Sex: Female
  Weight: 80 kg

DRUGS (3)
  1. TIKOSYN [Suspect]
     Dosage: 0.5  (0.25 MG BID) INTERVAL: BID) ORAL
     Route: 047
  2. ZOCOR [Concomitant]
  3. LEVOTHYROXINE SODIUM [Concomitant]

REACTIONS (2)
  - ARTHRITIS [None]
  - KNEE ARTHROPLASTY [None]
